FAERS Safety Report 7426844-X (Version None)
Quarter: 2011Q2

REPORT INFORMATION
  Report Type: 
  Country: None (occurrence: None)
  Receive Date: 20110415
  Receipt Date: 20110415
  Transmission Date: 20111010
  Serious: Yes (Other)
  Sender: FDA-Public Use
  Company Number: None

PATIENT
  Age: 60 Year
  Sex: Male
  Weight: 106.1417 kg

DRUGS (1)
  1. TAMSULOSIN HCL [Suspect]
     Indication: ENURESIS
     Dosage: 1 PILL 1 X DAY AT NIGHT PO
     Route: 048
     Dates: start: 20110301, end: 20110408

REACTIONS (7)
  - MIDDLE INSOMNIA [None]
  - PENIS DISORDER [None]
  - DRUG INEFFECTIVE [None]
  - RESPIRATORY DISORDER [None]
  - JOINT SWELLING [None]
  - PRODUCT SUBSTITUTION ISSUE [None]
  - FEELING HOT [None]
